FAERS Safety Report 20157016 (Version 4)
Quarter: 2022Q1

REPORT INFORMATION
  Report Type: Report from Study
  Country: FR (occurrence: FR)
  Receive Date: 20211207
  Receipt Date: 20220119
  Transmission Date: 20220423
  Serious: Yes (Hospitalization, Other)
  Sender: FDA-Public Use
  Company Number: FR-AMGEN-FRACT2021191564

PATIENT
  Age: 5 Year
  Sex: Female
  Weight: 13 kg

DRUGS (6)
  1. DENOSUMAB [Suspect]
     Active Substance: DENOSUMAB
     Indication: Osteogenesis imperfecta
     Dosage: 0.2 MILLILITER, Q6MO
     Route: 058
     Dates: start: 20181205
  2. CALCIUM GLUCONATE [Suspect]
     Active Substance: CALCIUM GLUCONATE
     Indication: Osteogenesis imperfecta
     Dosage: 500 MILLIGRAM
     Route: 048
     Dates: start: 20181205, end: 20211127
  3. CHOLECALCIFEROL\SODIUM FLUORIDE [Suspect]
     Active Substance: CHOLECALCIFEROL\SODIUM FLUORIDE
     Indication: Osteogenesis imperfecta
     Dosage: 1200 INTERNATIONAL UNIT
     Route: 048
     Dates: start: 20170222, end: 20211127
  4. IBUPROFEN [Concomitant]
     Active Substance: IBUPROFEN
     Dosage: 112.5 MILLIGRAM
     Route: 048
     Dates: start: 20211109, end: 20211114
  5. TRAMADOL CLORHIDRAT [Concomitant]
     Dosage: 6 GTT DROPS
     Route: 048
     Dates: start: 20211112
  6. ACETAMINOPHEN [Concomitant]
     Active Substance: ACETAMINOPHEN
     Dosage: 225 MILLIGRAM
     Route: 048
     Dates: start: 20211109

REACTIONS (1)
  - Hypercalcaemia [Recovered/Resolved]

NARRATIVE: CASE EVENT DATE: 20211126
